FAERS Safety Report 9511293 (Version 1)
Quarter: 2013Q3

REPORT INFORMATION
  Report Type: Spontaneous
  Country: AR (occurrence: AR)
  Receive Date: 20130910
  Receipt Date: 20130910
  Transmission Date: 20140515
  Serious: Yes (Other)
  Sender: FDA-Public Use
  Company Number: AR-AMGEN-ARGSP2013063012

PATIENT
  Age: 39 Year
  Sex: Female

DRUGS (1)
  1. ENBREL [Suspect]
     Indication: RHEUMATOID ARTHRITIS
     Dosage: 50 MG, WEEKLY
     Route: 065
     Dates: start: 20040301

REACTIONS (4)
  - Knee deformity [Recovered/Resolved]
  - Hip deformity [Recovered/Resolved]
  - Arthritis bacterial [Not Recovered/Not Resolved]
  - Localised infection [Not Recovered/Not Resolved]
